FAERS Safety Report 25934139 (Version 1)
Quarter: 2025Q4

REPORT INFORMATION
  Report Type: Spontaneous
  Country: EU (occurrence: EU)
  Receive Date: 20251017
  Receipt Date: 20251017
  Transmission Date: 20260117
  Serious: Yes (Hospitalization, Other)
  Sender: AUROBINDO
  Company Number: EU-AEMPS-1760590

PATIENT
  Sex: Female

DRUGS (3)
  1. EXEMESTANE [Interacting]
     Active Substance: EXEMESTANE
     Indication: Product used for unknown indication
     Dosage: 25 MILLIGRAM, ONCE A DAY
     Route: 048
     Dates: start: 2025, end: 20250827
  2. JANUMET [Interacting]
     Active Substance: METFORMIN HYDROCHLORIDE\SITAGLIPTIN PHOSPHATE
     Indication: Product used for unknown indication
     Dosage: UNK
     Route: 048
     Dates: start: 2025, end: 20250827
  3. DAPAGLIFLOZIN [Interacting]
     Active Substance: DAPAGLIFLOZIN
     Indication: Product used for unknown indication
     Dosage: UNK
     Route: 048
     Dates: start: 2025, end: 20250827

REACTIONS (5)
  - Chronic kidney disease [Unknown]
  - Cardiac failure acute [Recovering/Resolving]
  - Concomitant disease aggravated [Recovering/Resolving]
  - Contraindicated product administered [Recovered/Resolved]
  - Discontinued product administered [Recovered/Resolved]

NARRATIVE: CASE EVENT DATE: 20250529
